FAERS Safety Report 8280393-8 (Version None)
Quarter: 2012Q2

REPORT INFORMATION
  Report Type: 
  Country: None (occurrence: None)
  Receive Date: 20120412
  Receipt Date: 20110729
  Transmission Date: 20120825
  Serious: No
  Sender: FDA-Public Use
  Company Number: US-ASTRAZENECA-2011SE45508

PATIENT
  Sex: Female

DRUGS (2)
  1. NEXIUM [Suspect]
     Indication: GASTRIC ULCER HAEMORRHAGE
     Route: 048
     Dates: start: 20010101
  2. NEXIUM [Suspect]
     Indication: ARTERIOVENOUS MALFORMATION
     Route: 048
     Dates: start: 20010101

REACTIONS (4)
  - CARTILAGE INJURY [None]
  - OFF LABEL USE [None]
  - MENISCUS LESION [None]
  - OSTEOPOROSIS [None]
